FAERS Safety Report 18877776 (Version 1)
Quarter: 2021Q1

REPORT INFORMATION
  Report Type: Spontaneous
  Country: US (occurrence: US)
  Receive Date: 20210210
  Receipt Date: 20210210
  Transmission Date: 20210420
  Serious: Yes (Death)
  Sender: FDA-Public Use
  Company Number: None

PATIENT
  Sex: Male

DRUGS (11)
  1. POT CHLORIDE ER [Concomitant]
  2. RETEVMO [Suspect]
     Active Substance: SELPERCATINIB
     Indication: LUNG NEOPLASM MALIGNANT
     Dosage: ?          OTHER DOSE:2 CAPS;?
     Route: 048
     Dates: start: 20200814
  3. METOPROL SUC ER [Concomitant]
     Active Substance: METOPROLOL SUCCINATE
  4. VALSARTAN. [Concomitant]
     Active Substance: VALSARTAN
  5. CALCITRIOL. [Concomitant]
     Active Substance: CALCITRIOL
  6. FUROSEMIDE. [Concomitant]
     Active Substance: FUROSEMIDE
  7. NIFEDIPINE. [Concomitant]
     Active Substance: NIFEDIPINE
  8. OXYCODONE [Concomitant]
     Active Substance: OXYCODONE
  9. SIMVASTATIN. [Concomitant]
     Active Substance: SIMVASTATIN
  10. PAROXETINE. [Concomitant]
     Active Substance: PAROXETINE
  11. DONEPEZIL. [Concomitant]
     Active Substance: DONEPEZIL

REACTIONS (1)
  - Death [None]
